FAERS Safety Report 9400111 (Version 1)
Quarter: 2013Q2

REPORT INFORMATION
  Report Type: Spontaneous
  Country: ES (occurrence: None)
  Receive Date: 20130619
  Receipt Date: 20130619
  Transmission Date: 20140414
  Serious: Yes (Death)
  Sender: FDA-Public Use
  Company Number: 7212693

PATIENT
  Age: 38 Year
  Sex: Male

DRUGS (1)
  1. REBIF (INTERFERON BETA-1A) [Suspect]
     Indication: MULTIPLE SCLEROSIS
     Dosage: 3 IN 1 WK, SUBCUTANEOUS
     Dates: start: 2010, end: 2013

REACTIONS (2)
  - Completed suicide [None]
  - Malaise [None]
